FAERS Safety Report 5060781-3 (Version None)
Quarter: 2006Q3

REPORT INFORMATION
  Report Type: 
  Country: None (occurrence: None)
  Receive Date: 20060719
  Receipt Date: 20060719
  Transmission Date: 20061208
  Serious: Yes (Death, Hospitalization)
  Sender: FDA-Public Use
  Company Number: None

PATIENT
  Sex: Male

DRUGS (5)
  1. LITHIUM  300 MG [Suspect]
     Dosage: 300 MG BID PO
     Route: 048
  2. PERCOCET [Concomitant]
  3. TEMAZEPAM [Concomitant]
  4. PARNATE [Concomitant]
  5. ALPRAZOLAM [Concomitant]

REACTIONS (3)
  - HYPERNATRAEMIA [None]
  - MENTAL STATUS CHANGES [None]
  - THERAPEUTIC AGENT TOXICITY [None]
